FAERS Safety Report 5250826-X (Version None)
Quarter: 2007Q1

REPORT INFORMATION
  Report Type: 
  Country: None (occurrence: None)
  Receive Date: 20070228
  Receipt Date: 20060712
  Transmission Date: 20070707
  Serious: No
  Sender: FDA-Public Use
  Company Number: US-GLAXOSMITHKLINE-A0612024A

PATIENT
  Age: 67 Year
  Sex: Male

DRUGS (12)
  1. LAMICTAL [Suspect]
     Indication: BIPOLAR DISORDER
     Dosage: 100MG PER DAY
     Route: 048
     Dates: start: 20060501
  2. COREG [Concomitant]
  3. CLONAZEPAM [Concomitant]
  4. AMIODARONE HCL [Concomitant]
  5. ALTACE [Concomitant]
  6. PLAVIX [Concomitant]
  7. ASPIRIN [Concomitant]
  8. ALLEGRA [Concomitant]
  9. PROSCAR [Concomitant]
  10. VYTORIN [Concomitant]
  11. URSO [Concomitant]
  12. ZINC OXIDE [Concomitant]

REACTIONS (1)
  - PIGMENTATION LIP [None]
